FAERS Safety Report 18195647 (Version 1)
Quarter: 2020Q3

REPORT INFORMATION
  Report Type: Report from Study
  Country: SA (occurrence: SA)
  Receive Date: 20200826
  Receipt Date: 20200826
  Transmission Date: 20201103
  Serious: Yes (Hospitalization, Other)
  Sender: FDA-Public Use
  Company Number: SA-CELLTRION INC.-2020SA021987

PATIENT

DRUGS (15)
  1. REMSIMA [Suspect]
     Active Substance: INFLIXIMAB
     Dosage: WEEK 14 (V5): 5MG/KG (300MG)
     Route: 042
     Dates: start: 20190328, end: 20190328
  2. REMSIMA [Suspect]
     Active Substance: INFLIXIMAB
     Dosage: WEEK 22 (V6): 5MG/KG (275 MG)
     Route: 042
     Dates: start: 20190523, end: 20190523
  3. CEFUROXIME SODIUM. [Concomitant]
     Active Substance: CEFUROXIME SODIUM
     Indication: SURGERY
  4. METRONIDAZOLE. [Concomitant]
     Active Substance: METRONIDAZOLE
     Indication: SMALL INTESTINAL STENOSIS
     Dosage: 500 MG, 3 TIMES DAILY
     Route: 048
     Dates: start: 20190504, end: 20190518
  5. METRONIDAZOLE. [Concomitant]
     Active Substance: METRONIDAZOLE
     Indication: SURGERY
  6. REMSIMA [Suspect]
     Active Substance: INFLIXIMAB
     Indication: CROHN^S DISEASE
     Dosage: WEEK 0 (V2) (WEIGHT 58 KG): 5MG/KG (300MG) (INDUCTION THERAPY)
     Route: 042
     Dates: start: 20181220, end: 20181220
  7. REMSIMA [Suspect]
     Active Substance: INFLIXIMAB
     Dosage: WEEK 38 (V8): 5MG/KG (300MG)
     Route: 042
     Dates: start: 20190926, end: 20190926
  8. REMSIMA [Suspect]
     Active Substance: INFLIXIMAB
     Dosage: WEEK 6 (V4): 5MG/KG (300MG) (INDUCTION THERAPY)
     Route: 042
     Dates: start: 20190130, end: 20190130
  9. AZATHIOPRINE. [Concomitant]
     Active Substance: AZATHIOPRINE
     Indication: CROHN^S DISEASE
     Dosage: 2 TABS OF 50 MG?100MG, ONCE DAILY
     Route: 048
     Dates: start: 20181220
  10. METRONIDAZOLE. [Concomitant]
     Active Substance: METRONIDAZOLE
     Indication: SMALL INTESTINAL STENOSIS
     Dosage: 500 MG IV, 3 TIMES DAILY
     Route: 042
     Dates: start: 20190426, end: 20190429
  11. METRONIDAZOLE. [Concomitant]
     Active Substance: METRONIDAZOLE
     Indication: SURGERY
  12. CEFUROXIME SODIUM. [Concomitant]
     Active Substance: CEFUROXIME SODIUM
     Indication: SMALL INTESTINAL STENOSIS
     Dosage: 750 MG IV, 3 TIMES DAILY
     Route: 042
     Dates: start: 20190427, end: 20190429
  13. REMSIMA [Suspect]
     Active Substance: INFLIXIMAB
     Dosage: WEEK 2 (V3): 5MG/KG (300MG) (INDUCTION THERAPY)
     Route: 042
     Dates: start: 20190103, end: 20190103
  14. REMSIMA [Suspect]
     Active Substance: INFLIXIMAB
     Dosage: WEEK 30 (V7): 5MG/KG (300MG)
     Route: 042
     Dates: start: 20190718, end: 20190718
  15. REMSIMA [Suspect]
     Active Substance: INFLIXIMAB
     Dosage: (V9) WEIGHT (65 KG): 5MG/KG
     Route: 042
     Dates: start: 20191201

REACTIONS (5)
  - Overdose [Unknown]
  - Anaemia [Recovering/Resolving]
  - Underdose [Unknown]
  - Iron deficiency anaemia [Recovering/Resolving]
  - Product use issue [Unknown]

NARRATIVE: CASE EVENT DATE: 20190429
